FAERS Safety Report 24274571 (Version 2)
Quarter: 2024Q3

REPORT INFORMATION
  Report Type: Spontaneous
  Country: US (occurrence: US)
  Receive Date: 20240902
  Receipt Date: 20240905
  Transmission Date: 20241017
  Serious: No
  Sender: AMGEN
  Company Number: US-AMGEN-USASP2024174451

PATIENT
  Age: 58 Year
  Sex: Male

DRUGS (1)
  1. REPATHA [Suspect]
     Active Substance: EVOLOCUMAB
     Indication: Product used for unknown indication
     Dosage: UNK (STRENGTH: 140 MG)
     Route: 065

REACTIONS (6)
  - Device difficult to use [Unknown]
  - Incorrect disposal of product [Unknown]
  - Drug dose omission by device [Unknown]
  - Musculoskeletal stiffness [Unknown]
  - Pain [Unknown]
  - Influenza like illness [Unknown]

NARRATIVE: CASE EVENT DATE: 20240830
